FAERS Safety Report 19958682 (Version 1)
Quarter: 2021Q4

REPORT INFORMATION
  Report Type: Spontaneous
  Country: IT (occurrence: IT)
  Receive Date: 20211015
  Receipt Date: 20211015
  Transmission Date: 20220303
  Serious: Yes (Other)
  Sender: FDA-Public Use
  Company Number: IT-PFIZER INC-202101318632

PATIENT
  Age: 44 Year
  Sex: Female

DRUGS (3)
  1. PHENYTOIN SODIUM [Suspect]
     Active Substance: PHENYTOIN SODIUM
     Indication: Status epilepticus
     Dosage: 15 MG/KG (INFUSION RATE OF 25 MG/MIN (TOTAL LOADING DOSE 900 MG WITH AN INFUSION DURATION OF 40 MIN)
     Route: 042
  2. PHENYTOIN SODIUM [Suspect]
     Active Substance: PHENYTOIN SODIUM
     Dosage: 100 MG, 3X/DAY (MAINTANANCE DOSAGE / INFUSION RATE OF 25 MG/MIN)
     Route: 042
  3. VALPROIC ACID [Concomitant]
     Active Substance: VALPROIC ACID
     Indication: Seizure
     Dosage: UNK

REACTIONS (1)
  - Purple glove syndrome [Recovering/Resolving]
